FAERS Safety Report 6293122-4 (Version None)
Quarter: 2009Q3

REPORT INFORMATION
  Report Type: 
  Country: None (occurrence: None)
  Receive Date: 20090729
  Receipt Date: 20090720
  Transmission Date: 20100115
  Serious: Yes (Other)
  Sender: FDA-Public Use
  Company Number: ADR10572009

PATIENT
  Age: 73 Year
  Sex: Male

DRUGS (3)
  1. AMLODIPINE [Suspect]
     Indication: HYPERTENSION
     Dosage: 5 MG, ORAL
     Route: 048
     Dates: start: 20080526, end: 20080606
  2. CANDESARTAN CILEXETIL [Concomitant]
  3. CHLORAMPHENICOL [Concomitant]

REACTIONS (2)
  - DYSPEPSIA [None]
  - HEPATITIS [None]
